FAERS Safety Report 6686508-7 (Version None)
Quarter: 2010Q2

REPORT INFORMATION
  Report Type: 
  Country: None (occurrence: None)
  Receive Date: 20100414
  Receipt Date: 20100330
  Transmission Date: 20101027
  Serious: Yes (Other)
  Sender: FDA-Public Use
  Company Number: AUR-APL-2010-00935

PATIENT
  Age: 43 Year
  Sex: Male
  Weight: 105.9 kg

DRUGS (1)
  1. MIRTAZAPINE [Suspect]
     Indication: DEPRESSION
     Dosage: 15 MG, QHS,

REACTIONS (8)
  - ABNORMAL DREAMS [None]
  - ACUTE PSYCHOSIS [None]
  - ANXIETY [None]
  - DISSOCIATIVE DISORDER [None]
  - FLUSHING [None]
  - HYPERHIDROSIS [None]
  - RESTLESSNESS [None]
  - TREMOR [None]
